FAERS Safety Report 14309774 (Version 2)
Quarter: 2018Q1

REPORT INFORMATION
  Report Type: Spontaneous
  Country: BE (occurrence: BE)
  Receive Date: 20171220
  Receipt Date: 20180110
  Transmission Date: 20180509
  Serious: Yes (Other)
  Sender: FDA-Public Use
  Company Number: PHHY2017BE183176

PATIENT
  Age: 68 Year
  Sex: Male
  Weight: 73 kg

DRUGS (5)
  1. SANDOSTATINE LAR [Suspect]
     Active Substance: OCTREOTIDE ACETATE
     Indication: CARCINOID SYNDROME
     Dosage: 30 MG, QMO
     Route: 065
     Dates: start: 200701, end: 201404
  2. AMARYLLE [Concomitant]
     Indication: TYPE 2 DIABETES MELLITUS
     Dosage: 3 MG, UNK (1 TABLET IN THE MORNING, HALF OF A TABLET IN EVENING)
     Route: 048
  3. SANDOSTATINE LAR [Suspect]
     Active Substance: OCTREOTIDE ACETATE
     Dosage: 30 MG, QMO
     Route: 065
     Dates: start: 20161025, end: 201703
  4. IBUPROFEN. [Concomitant]
     Active Substance: IBUPROFEN
     Indication: PRODUCT USED FOR UNKNOWN INDICATION
     Route: 065
  5. CETIRIZINE [Concomitant]
     Active Substance: CETIRIZINE HYDROCHLORIDE
     Indication: PRURITUS
     Dosage: PRN (ATTENUATION SINCE SANDOSTATINE INJECTIONS)
     Route: 065

REACTIONS (9)
  - Type 2 diabetes mellitus [Unknown]
  - Nephrolithiasis [Unknown]
  - Periarthritis [Unknown]
  - Metastases to liver [Unknown]
  - Hypertrichosis [Unknown]
  - Malignant neoplasm progression [Unknown]
  - Gallbladder enlargement [Unknown]
  - Cellulitis [Unknown]
  - Musculoskeletal discomfort [Unknown]

NARRATIVE: CASE EVENT DATE: 200901
